FAERS Safety Report 8123187-6 (Version None)
Quarter: 2012Q1

REPORT INFORMATION
  Report Type: 
  Country: None (occurrence: None)
  Receive Date: 20120208
  Receipt Date: 20120203
  Transmission Date: 20120608
  Serious: Yes (Death, Hospitalization)
  Sender: FDA-Public Use
  Company Number: US-ACTELION-A-NJ2012-60225

PATIENT

DRUGS (5)
  1. REVATIO [Concomitant]
  2. COUMADIN [Concomitant]
  3. VENTAVIS [Suspect]
     Indication: PULMONARY HYPERTENSION
     Dosage: UNK
     Route: 055
     Dates: start: 20080819, end: 20120116
  4. LASIX [Concomitant]
  5. SPIRONOLACTONE [Concomitant]

REACTIONS (6)
  - HEPATIC FAILURE [None]
  - OESOPHAGEAL VARICES HAEMORRHAGE [None]
  - BIOPSY LIVER [None]
  - HEPATIC CIRRHOSIS [None]
  - HEPATIC VEIN THROMBOSIS [None]
  - RENAL FAILURE [None]
